FAERS Safety Report 8582882-5 (Version None)
Quarter: 2012Q3

REPORT INFORMATION
  Report Type: 
  Country: None (occurrence: None)
  Receive Date: 20120809
  Receipt Date: 20120730
  Transmission Date: 20120928
  Serious: Yes (Hospitalization)
  Sender: FDA-Public Use
  Company Number: JP-GILEAD-2012-0059183

PATIENT
  Sex: Female

DRUGS (9)
  1. TENOFOVIR DISOPROXIL FUMARATE [Suspect]
     Indication: HIV INFECTION
     Dosage: 300 MG, QD
     Route: 048
     Dates: start: 20050106, end: 20110530
  2. NORVIR [Suspect]
     Indication: HIV INFECTION
     Dosage: 100 MG, QD
     Route: 048
     Dates: start: 20110427, end: 20110530
  3. CANDESARTAN CILEXETIL [Concomitant]
     Dosage: UNK
     Dates: start: 20060127
  4. REYATAZ [Suspect]
     Indication: HIV INFECTION
     Dosage: 300 MG, QD
     Route: 048
     Dates: start: 20050106, end: 20110530
  5. EPZICOM [Concomitant]
     Dosage: UNK
     Dates: start: 20110530
  6. ISENTRESS [Concomitant]
     Dosage: UNK
     Dates: start: 20110530
  7. ZYRTEC [Concomitant]
     Dosage: UNK
     Dates: start: 20050905
  8. EPIVIR [Concomitant]
     Indication: HIV INFECTION
     Dosage: UNK
     Dates: start: 20050106, end: 20110530
  9. CANDESARTAN CILEXETIL [Concomitant]
     Dosage: UNK
     Dates: start: 20050401, end: 20060126

REACTIONS (3)
  - RENAL IMPAIRMENT [None]
  - DEHYDRATION [None]
  - DIARRHOEA [None]
